FAERS Safety Report 4769563-0 (Version None)
Quarter: 2005Q3

REPORT INFORMATION
  Report Type: 
  Country: None (occurrence: None)
  Receive Date: 20050915
  Receipt Date: 20050906
  Transmission Date: 20060218
  Serious: Yes (Hospitalization)
  Sender: FDA-Public Use
  Company Number: US-BOEHRINGER INGELHEIM PHARMACEUTICALS, INC.-2005-BP-15529BP

PATIENT
  Sex: Male
  Weight: 92.53 kg

DRUGS (1)
  1. TIPRANAVIR / RITONAVIR CAPSULES [Suspect]
     Indication: HIV INFECTION
     Dosage: TPV/R 1000/400 MG
     Route: 048
     Dates: start: 20021212

REACTIONS (4)
  - PAIN IN EXTREMITY [None]
  - SENSORY LOSS [None]
  - VASCULAR BYPASS GRAFT [None]
  - VENOUS REPAIR [None]
